FAERS Safety Report 10365643 (Version 1)
Quarter: 2014Q3

REPORT INFORMATION
  Report Type: Spontaneous
  Country: TR (occurrence: TR)
  Receive Date: 20140806
  Receipt Date: 20140806
  Transmission Date: 20150326
  Serious: Yes (Other)
  Sender: FDA-Public Use
  Company Number: TR-BRACCO-000060

PATIENT
  Age: 61 Year
  Sex: Female

DRUGS (3)
  1. MOLIT [Concomitant]
     Dosage: AMPOULE
     Dates: start: 20140608, end: 20140608
  2. MULTIHANCE [Suspect]
     Active Substance: GADOBENATE DIMEGLUMINE
     Dosage: 2 CC
     Route: 042
     Dates: start: 20140608, end: 20140608
  3. MULTIHANCE [Suspect]
     Active Substance: GADOBENATE DIMEGLUMINE
     Route: 042
     Dates: start: 20140608, end: 20140608

REACTIONS (5)
  - Oedema [Unknown]
  - Ecchymosis [Unknown]
  - Loss of consciousness [Unknown]
  - Physical disability [Unknown]
  - Erythema [Unknown]

NARRATIVE: CASE EVENT DATE: 20140608
